FAERS Safety Report 7832226-9 (Version None)
Quarter: 2011Q4

REPORT INFORMATION
  Report Type: 
  Country: None (occurrence: None)
  Receive Date: 20111022
  Receipt Date: 20111010
  Transmission Date: 20120403
  Serious: Yes (Life-Threatening, Hospitalization)
  Sender: FDA-Public Use
  Company Number: US-BAYER-2011-007690

PATIENT
  Age: 31 Year
  Sex: Female
  Weight: 68.027 kg

DRUGS (3)
  1. YASMIN [Suspect]
     Indication: CONTRACEPTION
     Dosage: UNK
     Dates: start: 20040101, end: 20060401
  2. CYMBALTA [Concomitant]
     Dosage: UNK UNK, QD
     Dates: start: 20040101, end: 20070101
  3. ANTIDEPRESSANTS [Concomitant]
     Dosage: UNK
     Dates: start: 20060101, end: 20060301

REACTIONS (5)
  - EMOTIONAL DISTRESS [None]
  - ASTHENIA [None]
  - MYOCARDIAL INFARCTION [None]
  - CARDIOMYOPATHY [None]
  - SYNCOPE [None]
